FAERS Safety Report 17220766 (Version 1)
Quarter: 2019Q4

REPORT INFORMATION
  Report Type: Spontaneous
  Country: US (occurrence: US)
  Receive Date: 20191231
  Receipt Date: 20191231
  Transmission Date: 20200122
  Serious: No
  Sender: FDA-Public Use
  Company Number: US-009507513-1912USA012598

PATIENT
  Sex: Male

DRUGS (2)
  1. ASMANEX [Suspect]
     Active Substance: MOMETASONE FUROATE
     Dosage: 2 INHALATIONS/DAILY
  2. ASMANEX [Suspect]
     Active Substance: MOMETASONE FUROATE
     Dosage: 2 INHALATIONS/DAILY

REACTIONS (3)
  - Product quality issue [Unknown]
  - Poor quality device used [Unknown]
  - Product quality issue [Unknown]

NARRATIVE: CASE EVENT DATE: 2017
